FAERS Safety Report 4368494-8 (Version None)
Quarter: 2004Q2

REPORT INFORMATION
  Report Type: 
  Country: None (occurrence: None)
  Receive Date: 20040602
  Receipt Date: 20031119
  Transmission Date: 20050107
  Serious: No
  Sender: FDA-Public Use
  Company Number: US-GLAXOSMITHKLINE-A0440394A

PATIENT
  Age: 4 Year
  Sex: Female

DRUGS (4)
  1. AUGMENTIN ES-600 [Suspect]
     Indication: SINUSITIS
     Dosage: 1TSP TWICE PER DAY
     Route: 048
     Dates: start: 20031117
  2. FLONASE [Suspect]
     Dosage: 1SPR PER DAY
     Route: 045
  3. ACETAMINOPHEN [Concomitant]
  4. IBUPROFEN [Concomitant]
     Route: 065

REACTIONS (1)
  - PAIN IN EXTREMITY [None]
